FAERS Safety Report 8346968-2 (Version None)
Quarter: 2012Q1

REPORT INFORMATION
  Report Type: 
  Country: None (occurrence: None)
  Receive Date: 20120315
  Receipt Date: 20110512
  Transmission Date: 20120608
  Serious: No
  Sender: FDA-Public Use
  Company Number: PHHY2011US36463

PATIENT
  Age: 47 Year
  Sex: Female
  Weight: 63.5 kg

DRUGS (4)
  1. DOXYCYCLINE [Concomitant]
  2. PROVIGIL [Concomitant]
  3. GILENYA [Suspect]
     Indication: MULTIPLE SCLEROSIS
     Dosage: 0.5 MG, DAILY, ORAL
     Route: 048
     Dates: start: 20110417
  4. ZANAFLEX [Concomitant]

REACTIONS (4)
  - GAIT DISTURBANCE [None]
  - BACK PAIN [None]
  - FATIGUE [None]
  - POOR PERIPHERAL CIRCULATION [None]
